FAERS Safety Report 22296183 (Version 2)
Quarter: 2023Q2

REPORT INFORMATION
  Report Type: Spontaneous
  Country: US (occurrence: US)
  Receive Date: 20230508
  Receipt Date: 20230601
  Transmission Date: 20230722
  Serious: No
  Sender: FDA-Public Use
  Company Number: US-BRISTOL-MYERS SQUIBB COMPANY-2023-065192

PATIENT
  Age: 73 Year
  Sex: Female
  Weight: 65.31 kg

DRUGS (1)
  1. LENALIDOMIDE [Suspect]
     Active Substance: LENALIDOMIDE
     Indication: Follicular lymphoma
     Dosage: FREQ - D1-21 Q28 DAYS
     Route: 048
     Dates: start: 20230403

REACTIONS (3)
  - Fatigue [Unknown]
  - Abdominal pain upper [Recovered/Resolved]
  - Blood iron decreased [Recovered/Resolved]
